FAERS Safety Report 23580954 (Version 1)
Quarter: 2024Q1

REPORT INFORMATION
  Report Type: Spontaneous
  Country: US (occurrence: US)
  Receive Date: 20240229
  Receipt Date: 20240229
  Transmission Date: 20240410
  Serious: Yes (Other)
  Sender: FDA-Public Use
  Company Number: US-SA-SAC20240228001248

PATIENT
  Age: 53 Year
  Sex: Female
  Weight: 54.4 kg

DRUGS (1)
  1. DUPIXENT [Suspect]
     Active Substance: DUPILUMAB
     Indication: Dermatitis atopic
     Dosage: 300 MG, QOW
     Route: 058

REACTIONS (4)
  - Pulmonary oedema [Recovered/Resolved]
  - Middle ear effusion [Recovered/Resolved]
  - Cough [Recovered/Resolved]
  - Sinus disorder [Recovered/Resolved]
